FAERS Safety Report 7074381-7 (Version None)
Quarter: 2010Q4

REPORT INFORMATION
  Report Type: 
  Country: None (occurrence: None)
  Receive Date: 20101029
  Receipt Date: 20101025
  Transmission Date: 20110411
  Serious: Yes (Hospitalization)
  Sender: FDA-Public Use
  Company Number: US-GILEAD-2010-0032221

PATIENT
  Sex: Male

DRUGS (15)
  1. LETAIRIS [Suspect]
     Indication: PULMONARY ARTERIAL HYPERTENSION
     Route: 048
     Dates: start: 20100824, end: 20100929
  2. LASIX [Concomitant]
  3. METOPROLOL SUCCINATE [Concomitant]
  4. LOPRESSOR [Concomitant]
  5. DIGOXIN [Concomitant]
  6. ZOCOR [Concomitant]
  7. LORATADINE [Concomitant]
  8. PRILOSEC [Concomitant]
  9. LACTULOSE [Concomitant]
  10. DULCOLAX [Concomitant]
  11. LEVOTHROID [Concomitant]
  12. FINASTERIDE [Concomitant]
  13. MEDROXYPROGESTERONE ACETATE [Concomitant]
  14. KLOR-CON [Concomitant]
  15. MULTI-VITAMINS [Concomitant]

REACTIONS (1)
  - RESPIRATORY FAILURE [None]
